FAERS Safety Report 8600589-2 (Version None)
Quarter: 2012Q3

REPORT INFORMATION
  Report Type: 
  Country: None (occurrence: None)
  Receive Date: 20120817
  Receipt Date: 20120810
  Transmission Date: 20120928
  Serious: Yes (Other)
  Sender: FDA-Public Use
  Company Number: US-ELI_LILLY_AND_COMPANY-US201208004337

PATIENT
  Age: 59 Year
  Sex: Female

DRUGS (1)
  1. EFFIENT [Suspect]
     Dosage: UNK
     Dates: end: 20120809

REACTIONS (1)
  - BIOPSY LUNG [None]
